FAERS Safety Report 17762135 (Version 2)
Quarter: 2021Q1

REPORT INFORMATION
  Report Type: Other
  Country: GB (occurrence: GB)
  Receive Date: 20200508
  Receipt Date: 20210326
  Transmission Date: 20210419
  Serious: Yes (Other)
  Sender: FDA-Public Use
  Company Number: GB-ROCHE-2065163

PATIENT
  Sex: Male

DRUGS (20)
  1. CODEINE [Concomitant]
     Active Substance: CODEINE
     Route: 048
  2. DOXAZOSIN [Concomitant]
     Active Substance: DOXAZOSIN MESYLATE
     Route: 048
  3. LACTULOSE. [Concomitant]
     Active Substance: LACTULOSE
     Dosage: 3.1?3.7G/5ML
     Route: 048
  4. FORMOTEROL [Concomitant]
     Active Substance: FORMOTEROL
     Route: 045
  5. RANITIDINE. [Concomitant]
     Active Substance: RANITIDINE
     Route: 048
  6. CIALIS [Concomitant]
     Active Substance: TADALAFIL
     Route: 065
  7. ROACTEMRA [Suspect]
     Active Substance: TOCILIZUMAB
     Route: 058
     Dates: start: 201702
  8. MOMETASONE [Concomitant]
     Active Substance: MOMETASONE
     Route: 045
  9. ATORVASTATIN [Concomitant]
     Active Substance: ATORVASTATIN
     Route: 048
  10. OILATUM EMOLLIENT [Concomitant]
  11. INFLUENZA VACCINE [Concomitant]
     Active Substance: INFLUENZA VIRUS VACCINE
  12. DICLOFENAC [Concomitant]
     Active Substance: DICLOFENAC
     Route: 065
  13. LANSOPRAZOLE. [Concomitant]
     Active Substance: LANSOPRAZOLE
     Route: 048
  14. PREGABALIN. [Concomitant]
     Active Substance: PREGABALIN
     Route: 048
  15. SILDENAFIL. [Concomitant]
     Active Substance: SILDENAFIL
     Route: 048
  16. ROACTEMRA [Suspect]
     Active Substance: TOCILIZUMAB
     Indication: RHEUMATOID ARTHRITIS
     Route: 058
     Dates: start: 20170208
  17. AMOROLFINE [Concomitant]
     Active Substance: AMOROLFINE
     Route: 065
  18. BECLOMETASONE [Concomitant]
     Active Substance: BECLOMETHASONE DIPROPIONATE
     Route: 045
  19. PARACETAMOL [Concomitant]
     Active Substance: ACETAMINOPHEN
     Route: 048
  20. MELOXICAM. [Concomitant]
     Active Substance: MELOXICAM
     Route: 065

REACTIONS (4)
  - Lower respiratory tract infection [Recovered/Resolved]
  - Cough [Unknown]
  - Eye infection [Unknown]
  - Lower respiratory tract infection [Unknown]

NARRATIVE: CASE EVENT DATE: 20180105
